FAERS Safety Report 6083682-0 (Version None)
Quarter: 2009Q1

REPORT INFORMATION
  Report Type: 
  Country: None (occurrence: None)
  Receive Date: 20090218
  Receipt Date: 20090218
  Transmission Date: 20090719
  Serious: Yes (Other)
  Sender: FDA-Public Use
  Company Number: None

PATIENT
  Sex: Male

DRUGS (1)
  1. LAMOTRIGINE [Suspect]
     Indication: BIPOLAR II DISORDER
     Dosage: 100MG QHS PO
     Route: 048
     Dates: start: 20090115, end: 20090215

REACTIONS (2)
  - MANIA [None]
  - PRODUCT QUALITY ISSUE [None]
